FAERS Safety Report 24383507 (Version 1)
Quarter: 2024Q4

REPORT INFORMATION
  Report Type: Spontaneous
  Country: US (occurrence: US)
  Receive Date: 20241001
  Receipt Date: 20241001
  Transmission Date: 20250114
  Serious: No
  Sender: TEVA
  Company Number: US-TEVA-VS-3243073

PATIENT
  Age: 73 Year
  Sex: Female
  Weight: 99.79 kg

DRUGS (6)
  1. ALBUTEROL SULFATE [Suspect]
     Active Substance: ALBUTEROL SULFATE
     Indication: Chronic obstructive pulmonary disease
     Dosage: EVERY 4 TO 6 HOURS AS NEEDED FOR SHORTNESS OF BREATH, USING ?INHALER TWICE TO THREE TIMES DAILY
     Route: 065
  2. ALBUTEROL SULFATE [Suspect]
     Active Substance: ALBUTEROL SULFATE
     Dosage: TIME INTERVAL: 0.33333333 DAYS: 90 MCG/DOSE
     Route: 065
  3. SPIRIVA [Concomitant]
     Active Substance: TIOTROPIUM BROMIDE MONOHYDRATE
  4. Duo-Neb [Concomitant]
  5. FLUTICASONE PROPIONATE [Concomitant]
     Active Substance: FLUTICASONE PROPIONATE
  6. SALMETEROL [Concomitant]
     Active Substance: SALMETEROL

REACTIONS (6)
  - Dyspnoea [Unknown]
  - Off label use [Unknown]
  - Incorrect dose administered [Unknown]
  - Hypopnoea [Unknown]
  - Drug delivery system issue [Unknown]
  - Drug ineffective [Unknown]
